FAERS Safety Report 6994368-X (Version None)
Quarter: 2010Q3

REPORT INFORMATION
  Report Type: 
  Country: None (occurrence: None)
  Receive Date: 20100917
  Receipt Date: 20100908
  Transmission Date: 20110219
  Serious: No
  Sender: FDA-Public Use
  Company Number: US-ABBOTT-10P-163-0626643-00

PATIENT
  Sex: Male
  Weight: 60.382 kg

DRUGS (1)
  1. DEPAKOTE ER [Suspect]
     Indication: PARTIAL SEIZURES
     Route: 048

REACTIONS (1)
  - DRUG LEVEL BELOW THERAPEUTIC [None]
